FAERS Safety Report 15747604 (Version 1)
Quarter: 2018Q4

REPORT INFORMATION
  Report Type: Spontaneous
  Country: FR (occurrence: FR)
  Receive Date: 20181220
  Receipt Date: 20181220
  Transmission Date: 20190205
  Serious: Yes (Hospitalization)
  Sender: FDA-Public Use
  Company Number: FR-ZYDUS-031665

PATIENT
  Age: 47 Year
  Sex: Female

DRUGS (5)
  1. BACLOFEN. [Suspect]
     Active Substance: BACLOFEN
     Indication: HYPERTONIA
     Dosage: 1G IN THE MORNING
     Route: 048
     Dates: start: 20160111
  2. GABAPENTIN. [Suspect]
     Active Substance: GABAPENTIN
     Indication: NEUROMYELITIS OPTICA SPECTRUM DISORDER
     Dosage: DOSE: 300-400-300
     Route: 048
     Dates: start: 20130909
  3. ESOMEPRAZOLE/ESOMEPRAZOLE MAGNESIUM/ESOMEPRAZOLE SODIUM [Suspect]
     Active Substance: ESOMEPRAZOLE
     Indication: PAIN
     Route: 048
     Dates: start: 201305
  4. MYCOPHENOLIC ACID. [Suspect]
     Active Substance: MYCOPHENOLIC ACID
     Indication: NEUROMYELITIS OPTICA SPECTRUM DISORDER
     Dosage: 1G MORNING AND EVENING
     Route: 048
     Dates: start: 20130920
  5. CLONAZEPAM. [Suspect]
     Active Substance: CLONAZEPAM
     Indication: NEUROMYELITIS OPTICA SPECTRUM DISORDER
     Dosage: 7 DROPS IN THE EVENING
     Route: 048
     Dates: start: 20130909

REACTIONS (4)
  - Hyperlipasaemia [Recovered/Resolved]
  - Abdominal pain [Recovered/Resolved]
  - Pancreatitis chronic [Recovered/Resolved]
  - Diarrhoea [Recovered/Resolved]

NARRATIVE: CASE EVENT DATE: 201808
